FAERS Safety Report 4897119-8 (Version None)
Quarter: 2005Q4

REPORT INFORMATION
  Report Type: 
  Country: None (occurrence: None)
  Receive Date: 20051228
  Receipt Date: 20050309
  Transmission Date: 20060501
  Serious: Yes (Hospitalization)
  Sender: FDA-Public Use
  Company Number: USA050392835

PATIENT
  Age: 57 Year
  Sex: Female
  Weight: 52 kg

DRUGS (7)
  1. HUMULIN N [Suspect]
     Indication: DIABETES MELLITUS
  2. LANTUS [Concomitant]
  3. LIPITOR [Concomitant]
  4. ZOLOFT [Concomitant]
  5. ESTRATEST [Concomitant]
  6. DURATUSS [Concomitant]
  7. BEXTRA [Concomitant]

REACTIONS (3)
  - BLOOD CHOLESTEROL INCREASED [None]
  - GLYCOSYLATED HAEMOGLOBIN INCREASED [None]
  - KETOACIDOSIS [None]
